FAERS Safety Report 6330810-5 (Version None)
Quarter: 2009Q3

REPORT INFORMATION
  Report Type: 
  Country: None (occurrence: None)
  Receive Date: 20090827
  Receipt Date: 20090820
  Transmission Date: 20100115
  Serious: Yes (Disabling, Other)
  Sender: FDA-Public Use
  Company Number: PHHY2009JP26916

PATIENT
  Sex: Female
  Weight: 62 kg

DRUGS (5)
  1. ZOMETA [Suspect]
     Indication: METASTASES TO BONE
     Dosage: 4MG (PER ADMINISTRATION)
     Route: 042
     Dates: start: 20070615, end: 20080220
  2. ENDOXAN [Concomitant]
     Dosage: 600 MG, UNK
     Route: 042
     Dates: start: 20070608, end: 20071116
  3. FARMORUBICIN [Concomitant]
     Dosage: 45 MG, UNK
     Route: 042
     Dates: start: 20070608, end: 20071116
  4. FLUOROURACIL [Concomitant]
     Dosage: 750 MG, UNK
     Route: 042
     Dates: start: 20070608, end: 20071116
  5. ARIMIDEX [Concomitant]
     Dosage: 1 MG, UNK
     Route: 048
     Dates: start: 20080110

REACTIONS (6)
  - BLOOD LACTATE DEHYDROGENASE INCREASED [None]
  - CONCOMITANT DISEASE AGGRAVATED [None]
  - NEOPLASM MALIGNANT [None]
  - OSTEONECROSIS [None]
  - RENAL IMPAIRMENT [None]
  - TOOTH EXTRACTION [None]
